FAERS Safety Report 4928010-6 (Version None)
Quarter: 2006Q1

REPORT INFORMATION
  Report Type: 
  Country: None (occurrence: None)
  Receive Date: 20060127
  Receipt Date: 20051209
  Transmission Date: 20060701
  Serious: Yes (Other)
  Sender: FDA-Public Use
  Company Number: 2005168373

PATIENT
  Sex: Female

DRUGS (2)
  1. LYRICA [Suspect]
     Indication: ILL-DEFINED DISORDER
     Dates: start: 20050101
  2. NAPROSYN [Suspect]
     Indication: ILL-DEFINED DISORDER

REACTIONS (1)
  - OEDEMA PERIPHERAL [None]
